APPROVED DRUG PRODUCT: PHENDIMETRAZINE TARTRATE
Active Ingredient: PHENDIMETRAZINE TARTRATE
Strength: 105MG
Dosage Form/Route: CAPSULE, EXTENDED RELEASE;ORAL
Application: A087214 | Product #001
Applicant: DM GRAHAM LABORATORIES INC
Approved: May 26, 1982 | RLD: No | RS: No | Type: DISCN